FAERS Safety Report 6993670-5 (Version None)
Quarter: 2010Q3

REPORT INFORMATION
  Report Type: 
  Country: None (occurrence: None)
  Receive Date: 20100917
  Receipt Date: 20070824
  Transmission Date: 20110219
  Serious: Yes (Other)
  Sender: FDA-Public Use
  Company Number: US-ASTRAZENECA-2007UW15746

PATIENT
  Age: 454 Month
  Sex: Male
  Weight: 78.9 kg

DRUGS (7)
  1. SEROQUEL [Suspect]
     Indication: DEPRESSION
     Route: 048
     Dates: start: 20021009, end: 20060815
  2. SEROQUEL [Suspect]
     Route: 048
     Dates: start: 20030109, end: 20060201
  3. LEXAPRO [Concomitant]
     Dates: start: 20030101
  4. ANTABUSE [Concomitant]
     Dates: start: 20030129
  5. PAXIL [Concomitant]
     Dates: start: 20030129
  6. FAMOTIDINE [Concomitant]
     Dates: start: 20030129
  7. VIOKASE 16 [Concomitant]
     Dosage: THRICE A DAY
     Dates: start: 20030129

REACTIONS (3)
  - PANCREATITIS [None]
  - PANCREATITIS ACUTE [None]
  - PANCREATITIS CHRONIC [None]
